FAERS Safety Report 25121721 (Version 2)
Quarter: 2025Q1

REPORT INFORMATION
  Report Type: Spontaneous
  Country: US (occurrence: US)
  Receive Date: 20250326
  Receipt Date: 20250326
  Transmission Date: 20250409
  Serious: Yes (Other)
  Sender: GILEAD
  Company Number: US-GILEAD-2025-0708112

PATIENT
  Age: 78 Year
  Sex: Female

DRUGS (6)
  1. YESCARTA [Suspect]
     Active Substance: AXICABTAGENE CILOLEUCEL
     Indication: Diffuse large B-cell lymphoma
     Route: 065
  2. ETOPOSIDE [Concomitant]
     Active Substance: ETOPOSIDE
  3. PREDNISONE [Concomitant]
     Active Substance: PREDNISONE
  4. ONCOVIN [Concomitant]
     Active Substance: VINCRISTINE SULFATE
  5. CYCLOPHOSPHAMIDE [Concomitant]
     Active Substance: CYCLOPHOSPHAMIDE
  6. EPIRUBICIN [Concomitant]
     Active Substance: EPIRUBICIN

REACTIONS (2)
  - Myelodysplastic syndrome [Unknown]
  - Immune effector cell-associated neurotoxicity syndrome [Unknown]
